FAERS Safety Report 7545395-5 (Version None)
Quarter: 2011Q2

REPORT INFORMATION
  Report Type: 
  Country: None (occurrence: None)
  Receive Date: 20110607
  Receipt Date: 20110524
  Transmission Date: 20111010
  Serious: Yes (Hospitalization)
  Sender: FDA-Public Use
  Company Number: DSU-2011-03801

PATIENT
  Age: 86 Year
  Sex: Female
  Weight: 56.6996 kg

DRUGS (5)
  1. BENICAR [Suspect]
     Indication: HYPERTENSION
     Dosage: 40 MG (40 MG, QD) PER ORAL
     Route: 048
     Dates: start: 20100101
  2. FEMARA [Concomitant]
  3. CITALOPRAM HYDROBROMIDE [Concomitant]
  4. LIPITOR [Concomitant]
  5. CARVEDILOL [Concomitant]

REACTIONS (1)
  - BREAST CANCER RECURRENT [None]
